FAERS Safety Report 6383301-X (Version None)
Quarter: 2009Q4

REPORT INFORMATION
  Report Type: 
  Country: None (occurrence: None)
  Receive Date: 20091001
  Receipt Date: 20090923
  Transmission Date: 20100525
  Serious: Yes (Hospitalization)
  Sender: FDA-Public Use
  Company Number: US-BIOGENIDEC-2009BI025170

PATIENT
  Age: 24 Year
  Sex: Male

DRUGS (3)
  1. TYSABRI [Suspect]
     Indication: MULTIPLE SCLEROSIS
     Route: 042
     Dates: start: 20090107
  2. NAPROSYN [Concomitant]
     Indication: MIGRAINE
  3. PHENERGAN [Concomitant]
     Indication: NAUSEA
     Route: 048

REACTIONS (2)
  - NAUSEA [None]
  - SYNCOPE [None]
